FAERS Safety Report 14512733 (Version 1)
Quarter: 2018Q1

REPORT INFORMATION
  Report Type: Spontaneous
  Country: US (occurrence: US)
  Receive Date: 20180208
  Receipt Date: 20180208
  Transmission Date: 20180509
  Serious: No
  Sender: FDA-Public Use
  Company Number: None

PATIENT
  Age: 45 Year
  Sex: Female
  Weight: 65.25 kg

DRUGS (4)
  1. HERCEPTIN [Suspect]
     Active Substance: TRASTUZUMAB
     Indication: BREAST CANCER METASTATIC
     Dosage: ?          OTHER FREQUENCY:EVERY 3 WEEKS;?
     Route: 042
  2. PERJETA [Concomitant]
     Active Substance: PERTUZUMAB
  3. ZOMETA [Concomitant]
     Active Substance: ZOLEDRONIC ACID
  4. VARIOUS SUPPLEMENTS [Concomitant]

REACTIONS (1)
  - Muscle spasms [None]

NARRATIVE: CASE EVENT DATE: 20180115
